FAERS Safety Report 7176013-6 (Version None)
Quarter: 2010Q4

REPORT INFORMATION
  Report Type: 
  Country: None (occurrence: None)
  Receive Date: 20101220
  Receipt Date: 20101208
  Transmission Date: 20110411
  Serious: No
  Sender: FDA-Public Use
  Company Number: US-BIOGENIDEC-2010BI029957

PATIENT
  Age: 44 Year
  Sex: Female

DRUGS (2)
  1. TYSABRI [Suspect]
     Indication: MULTIPLE SCLEROSIS
     Route: 042
     Dates: start: 20100825
  2. BENADRYL [Concomitant]
     Indication: PREMEDICATION

REACTIONS (9)
  - CHILLS [None]
  - COGNITIVE DISORDER [None]
  - EAR PRURITUS [None]
  - EYE INFECTION [None]
  - EYE PRURITUS [None]
  - PARAESTHESIA [None]
  - PRURITUS [None]
  - SOMNOLENCE [None]
  - SWELLING FACE [None]
